FAERS Safety Report 14981056 (Version 3)
Quarter: 2019Q2

REPORT INFORMATION
  Report Type: Spontaneous
  Country: US (occurrence: US)
  Receive Date: 20180606
  Receipt Date: 20190606
  Transmission Date: 20190711
  Serious: No
  Sender: FDA-Public Use
  Company Number: US-PTC THERAPEUTICS, INC.-US-2018PTC000415

PATIENT
  Age: 7 Year
  Sex: Male

DRUGS (3)
  1. EMFLAZA [Suspect]
     Active Substance: DEFLAZACORT
     Indication: DUCHENNE MUSCULAR DYSTROPHY
     Dosage: 24 MG, QD
     Route: 048
     Dates: start: 20170524, end: 201902
  2. EMFLAZA [Suspect]
     Active Substance: DEFLAZACORT
     Dosage: 18 MG, QD
     Route: 048
  3. EMFLAZA [Suspect]
     Active Substance: DEFLAZACORT
     Dosage: 24 MG, QD
     Route: 048
     Dates: start: 20171017

REACTIONS (2)
  - Mobility decreased [Unknown]
  - Weight increased [Unknown]

NARRATIVE: CASE EVENT DATE: 20171219
